FAERS Safety Report 24990089 (Version 1)
Quarter: 2025Q1

REPORT INFORMATION
  Report Type: Spontaneous
  Country: US (occurrence: None)
  Receive Date: 20250219
  Receipt Date: 20250219
  Transmission Date: 20250409
  Serious: Yes (Other)
  Sender: FDA-CTU
  Company Number: None

PATIENT
  Age: 42 Year
  Sex: Male
  Weight: 124.65 kg

DRUGS (3)
  1. BIVIGAM [Suspect]
     Active Substance: HUMAN IMMUNOGLOBULIN G
     Indication: Myasthenia gravis
     Route: 041
  2. Diphenhydramine 50mg PO premed [Concomitant]
     Dates: start: 20250213, end: 20250213
  3. Acetaminophen 1000mg PO premed [Concomitant]
     Dates: start: 20250213, end: 20250213

REACTIONS (5)
  - Nausea [None]
  - Retching [None]
  - Abdominal discomfort [None]
  - Urticaria [None]
  - Blood pressure increased [None]

NARRATIVE: CASE EVENT DATE: 20250213
